FAERS Safety Report 18535941 (Version 3)
Quarter: 2021Q2

REPORT INFORMATION
  Report Type: Spontaneous
  Country: US (occurrence: US)
  Receive Date: 20201123
  Receipt Date: 20210621
  Transmission Date: 20210717
  Serious: Yes (Hospitalization)
  Sender: FDA-Public Use
  Company Number: US-DECIPHERA PHARMACEUTICALS LLC-2020-US-000656

PATIENT
  Sex: Female

DRUGS (4)
  1. QINLOCK [Suspect]
     Active Substance: RIPRETINIB
     Dosage: 150 MILLIGRAM, QD
     Route: 048
     Dates: start: 20201007, end: 20201121
  2. QINLOCK [Suspect]
     Active Substance: RIPRETINIB
     Indication: GASTROINTESTINAL STROMAL TUMOUR
     Dosage: 150 MILLIGRAM, QD
     Route: 048
     Dates: start: 20201005
  3. QINLOCK [Suspect]
     Active Substance: RIPRETINIB
     Dosage: UNK
  4. QINLOCK [Suspect]
     Active Substance: RIPRETINIB
     Dosage: 150 MILLIGRAM, QD
     Route: 048
     Dates: start: 20201006

REACTIONS (6)
  - Alopecia [Unknown]
  - Neuropathy peripheral [Recovering/Resolving]
  - Illness [Unknown]
  - Nausea [Recovering/Resolving]
  - Disease progression [Unknown]
  - Product dose omission issue [Unknown]
